FAERS Safety Report 4445157-1 (Version None)
Quarter: 2004Q3

REPORT INFORMATION
  Report Type: 
  Country: None (occurrence: None)
  Receive Date: 20040907
  Receipt Date: 20040825
  Transmission Date: 20050211
  Serious: Yes (Other)
  Sender: FDA-Public Use
  Company Number: 2004061577

PATIENT

DRUGS (10)
  1. NORVASC [Suspect]
     Indication: ILL-DEFINED DISORDER
     Dosage: 2.5 MG (1D), ORAL
     Route: 048
  2. ALLOPURINOL [Concomitant]
  3. CLOTIAZEPAM (CLOTIAZEPAM) [Concomitant]
  4. EXCELASE (ENZYMES NOS) [Concomitant]
  5. BIOFERMIN (BACILLUS SUBTILIS, LACTOBACILLUS ACIDOPHILUS, STREPTOCOCCUS [Concomitant]
  6. MAGNESIUM OXIDE (MAGNESIUM OXIDE) [Concomitant]
  7. UROSDEOXYCHOLIC ACID (URSODEOXYCHOLIC ACID) [Concomitant]
  8. ITOPRIDE HYDROCHLORIDE (ITOPRIDE HYDROCHLORIDE) [Concomitant]
  9. HERBAL PREPARATION (HERBAL PREPARATION) [Concomitant]
  10. CAMOSTAT MESILATE (CAMOSTAT MESILATE) [Concomitant]

REACTIONS (1)
  - BONE MARROW DEPRESSION [None]
